FAERS Safety Report 9947796 (Version 1)
Quarter: 2014Q1

REPORT INFORMATION
  Report Type: Report from Study
  Country: US (occurrence: US)
  Receive Date: 20140303
  Receipt Date: 20140303
  Transmission Date: 20141002
  Serious: No
  Sender: FDA-Public Use
  Company Number: US-ABBVIE-13P-163-1062327-00

PATIENT
  Age: 18 Year
  Sex: Male
  Weight: 103.97 kg

DRUGS (2)
  1. HUMIRA [Suspect]
     Indication: REITER^S SYNDROME
     Dates: start: 20130228
  2. INH [Concomitant]
     Indication: UNEVALUABLE INVESTIGATION
     Dates: start: 201301

REACTIONS (1)
  - Off label use [Unknown]
